FAERS Safety Report 4700952-6 (Version None)
Quarter: 2005Q2

REPORT INFORMATION
  Report Type: 
  Country: None (occurrence: None)
  Receive Date: 20050113
  Receipt Date: 20050113
  Transmission Date: 20051028
  Serious: No
  Sender: FDA-Public Use
  Company Number: None

PATIENT
  Sex: Male
  Weight: 86.1834 kg

DRUGS (1)
  1. PREDNISOLONE ACETATE [Suspect]
     Indication: IRIDOCYCLITIS
     Dosage: 1 DROP O, U QD
     Route: 047
     Dates: start: 20021101, end: 20020108

REACTIONS (3)
  - IRIDOCYCLITIS [None]
  - IRIS ADHESIONS [None]
  - THERAPEUTIC RESPONSE UNEXPECTED WITH DRUG SUBSTITUTION [None]
